FAERS Safety Report 19211831 (Version 1)
Quarter: 2021Q2

REPORT INFORMATION
  Report Type: Spontaneous
  Country: US (occurrence: US)
  Receive Date: 20210504
  Receipt Date: 20210504
  Transmission Date: 20210717
  Serious: No
  Sender: FDA-Public Use
  Company Number: US-FDC LIMITED-2020RIS00482

PATIENT
  Age: 6 Decade
  Sex: Male

DRUGS (1)
  1. LATANOPROST. [Suspect]
     Active Substance: LATANOPROST
     Indication: OPEN ANGLE GLAUCOMA
     Dosage: 1 DROP, 1X/DAY IN EACH EYE BEFORE BED
     Route: 047
     Dates: start: 20190311, end: 2019

REACTIONS (2)
  - Drug ineffective [Recovered/Resolved]
  - Intraocular pressure increased [Recovered/Resolved]

NARRATIVE: CASE EVENT DATE: 2019
